FAERS Safety Report 12301443 (Version 1)
Quarter: 2016Q2

REPORT INFORMATION
  Report Type: Spontaneous
  Country: US (occurrence: US)
  Receive Date: 20160425
  Receipt Date: 20160425
  Transmission Date: 20160815
  Serious: Yes (Other)
  Sender: FDA-Public Use
  Company Number: US-ASTELLAS-2015US014232

PATIENT
  Age: 68 Year
  Sex: Male

DRUGS (4)
  1. LEXISCAN [Suspect]
     Active Substance: REGADENOSON
     Indication: SCAN MYOCARDIAL PERFUSION
     Dosage: UNK, UNKNOWN FREQ.
     Route: 065
     Dates: start: 20150416, end: 20150416
  2. LEXISCAN [Suspect]
     Active Substance: REGADENOSON
     Indication: CORONARY ARTERY DISEASE
  3. LEXISCAN [Suspect]
     Active Substance: REGADENOSON
     Indication: CHEST PAIN
  4. LEXISCAN [Suspect]
     Active Substance: REGADENOSON
     Indication: DYSPNOEA

REACTIONS (5)
  - Flushing [Recovered/Resolved]
  - Atrioventricular block complete [Recovered/Resolved]
  - Sinus bradycardia [Recovered/Resolved]
  - Nausea [Recovered/Resolved]
  - Dyspnoea [Recovered/Resolved]

NARRATIVE: CASE EVENT DATE: 20150416
